FAERS Safety Report 13807885 (Version 1)
Quarter: 2017Q3

REPORT INFORMATION
  Report Type: Spontaneous
  Country: US (occurrence: US)
  Receive Date: 20170728
  Receipt Date: 20170728
  Transmission Date: 20171127
  Serious: No
  Sender: FDA-Public Use
  Company Number: US-DEPOMED, INC.-US-2016DEP012552

PATIENT

DRUGS (1)
  1. LAZANDA [Suspect]
     Active Substance: FENTANYL CITRATE
     Indication: PAIN
     Dosage: 100 ?G,ONE SPRAY ONE NOSTRIL PER EPISODE OF ACUTE PAIN, CAN INCREASE TO ONE SPRAY EVERY 2 HOUR MAX 8
     Route: 045

REACTIONS (3)
  - Drug dose omission [Recovered/Resolved]
  - Product use in unapproved indication [Not Recovered/Not Resolved]
  - Product quality issue [Recovered/Resolved]

NARRATIVE: CASE EVENT DATE: 20161015
